FAERS Safety Report 5228159-7 (Version None)
Quarter: 2007Q1

REPORT INFORMATION
  Report Type: 
  Country: None (occurrence: None)
  Receive Date: 20070130
  Receipt Date: 20070116
  Transmission Date: 20070707
  Serious: Yes (Death)
  Sender: FDA-Public Use
  Company Number: KADN20070011

PATIENT
  Age: 37 Year
  Sex: Male
  Weight: 115.6672 kg

DRUGS (2)
  1. KADIAN [Suspect]
     Dates: end: 20060701
  2. ALEVE [Concomitant]

REACTIONS (17)
  - ACCIDENTAL DEATH [None]
  - AORTIC ARTERIOSCLEROSIS [None]
  - DRUG SCREEN POSITIVE [None]
  - DRUG TOXICITY [None]
  - EUPHORIC MOOD [None]
  - HEADACHE [None]
  - LOSS OF CONSCIOUSNESS [None]
  - MALAISE [None]
  - OVERDOSE [None]
  - PULMONARY CONGESTION [None]
  - PULMONARY OEDEMA [None]
  - PYREXIA [None]
  - SCAR [None]
  - SILICOSIS [None]
  - SWELLING FACE [None]
  - VENTRICULAR HYPERTROPHY [None]
  - VOMITING [None]
